FAERS Safety Report 9551304 (Version 1)
Quarter: 2013Q3

REPORT INFORMATION
  Report Type: Spontaneous
  Country: US (occurrence: US)
  Receive Date: 20130925
  Receipt Date: 20130925
  Transmission Date: 20140515
  Serious: Yes (Hospitalization)
  Sender: FDA-Public Use
  Company Number: US-SUN PHARMACEUTICAL INDUSTRIES LTD-2013SUN04729

PATIENT
  Age: 40 Year
  Sex: Female

DRUGS (6)
  1. LITHIUM CARBONATE TABLETS, USP 300MG [Suspect]
     Indication: BIPOLAR DISORDER
     Route: 065
  2. ZOLPIDEM TARTRATE 5 MG TABLET [Suspect]
     Indication: PRODUCT USED FOR UNKNOWN INDICATION
     Dosage: QHS
     Route: 048
  3. PAROXETINE HYDROCHLORIDE 10 MG TABLET [Suspect]
     Indication: PRODUCT USED FOR UNKNOWN INDICATION
     Dosage: 10 MG, QD
     Route: 048
  4. ARIPIPRAZOLE [Concomitant]
     Dosage: 15 MG, QD
     Route: 048
  5. RINGER^S LACTATE [Concomitant]
     Dosage: 125 ML/H
     Route: 042
  6. PERPHENAZINE [Concomitant]
     Dosage: 32 MG, QHS
     Route: 048

REACTIONS (3)
  - Hypernatraemia [Recovering/Resolving]
  - Delirium [Recovering/Resolving]
  - Nephrogenic diabetes insipidus [Recovering/Resolving]
